FAERS Safety Report 4411905-X (Version None)
Quarter: 2004Q3

REPORT INFORMATION
  Report Type: 
  Country: None (occurrence: None)
  Receive Date: 20040730
  Receipt Date: 20040102
  Transmission Date: 20050211
  Serious: No
  Sender: FDA-Public Use
  Company Number: US-GLAXOSMITHKLINE-A0490962A

PATIENT
  Age: 88 Year
  Sex: Male

DRUGS (9)
  1. ZANTAC [Suspect]
     Indication: ILL-DEFINED DISORDER
     Dosage: 150MG TWICE PER DAY
     Route: 048
  2. COREG [Concomitant]
  3. PLAVIX [Concomitant]
  4. LANOXIN [Concomitant]
  5. POTASSIUM [Concomitant]
  6. ASPIRIN [Concomitant]
  7. FUROSEMIDE [Concomitant]
  8. NITROGLYCERIN [Concomitant]
  9. DIOVAN [Concomitant]

REACTIONS (2)
  - ABDOMINAL PAIN [None]
  - DYSGEUSIA [None]
